FAERS Safety Report 18040019 (Version 1)
Quarter: 2020Q3

REPORT INFORMATION
  Report Type: Report from Study
  Country: GB (occurrence: GB)
  Receive Date: 20200717
  Receipt Date: 20200717
  Transmission Date: 20201103
  Serious: Yes (Hospitalization, Other)
  Sender: FDA-Public Use
  Company Number: GB-AMGEN-GBR-20200502096

PATIENT
  Age: 47 Year
  Sex: Female

DRUGS (1)
  1. OTEZLA [Suspect]
     Active Substance: APREMILAST
     Indication: PSORIASIS
     Dosage: 30 MILLIGRAM, BID
     Route: 048

REACTIONS (5)
  - Cellulitis [Recovering/Resolving]
  - Malaise [Recovering/Resolving]
  - Infection [Recovering/Resolving]
  - SARS-CoV-2 test positive [Recovering/Resolving]
  - Sepsis [Recovering/Resolving]
